FAERS Safety Report 11619008 (Version 1)
Quarter: 2015Q4

REPORT INFORMATION
  Report Type: Report from Study
  Country: KR (occurrence: KR)
  Receive Date: 20151012
  Receipt Date: 20151012
  Transmission Date: 20160304
  Serious: No
  Sender: FDA-Public Use
  Company Number: PHHY2015KR123329

PATIENT
  Age: 58 Year
  Sex: Male

DRUGS (6)
  1. TASNA [Concomitant]
     Indication: DIARRHOEA
     Dosage: 1500 MG, UNK
     Route: 048
     Dates: start: 20141223, end: 20141223
  2. ARESTAL [Concomitant]
     Active Substance: LOPERAMIDE OXIDE
     Indication: DIARRHOEA
     Dosage: 6 MG, UNK
     Route: 048
     Dates: start: 20141223, end: 20141231
  3. SMECTA ^PFIZER^ [Concomitant]
     Indication: DIARRHOEA
     Dosage: 3 OT, UNK (3 PAK)
     Route: 048
     Dates: start: 20141223, end: 20141231
  4. TASIGNA [Suspect]
     Active Substance: NILOTINIB
     Indication: CHRONIC MYELOID LEUKAEMIA
     Dosage: 600 MG, QD
     Route: 048
     Dates: start: 20141210
  5. ANAPROX [Concomitant]
     Active Substance: NAPROXEN SODIUM
     Indication: MYALGIA
     Dosage: 825 MG, UNK
     Route: 048
     Dates: start: 20141210, end: 2015
  6. CADUET [Concomitant]
     Active Substance: AMLODIPINE BESYLATE\ATORVASTATIN CALCIUM
     Indication: HYPERTENSION
     Dosage: 50 MG, UNK
     Route: 048

REACTIONS (1)
  - Hyperglycaemia [Not Recovered/Not Resolved]

NARRATIVE: CASE EVENT DATE: 20150108
